FAERS Safety Report 9439901 (Version 1)
Quarter: 2013Q3

REPORT INFORMATION
  Report Type: Spontaneous
  Country: US (occurrence: US)
  Receive Date: 20130805
  Receipt Date: 20130805
  Transmission Date: 20140515
  Serious: No
  Sender: FDA-Public Use
  Company Number: US-JNJFOC-20130705426

PATIENT
  Sex: Male
  Weight: 77.11 kg

DRUGS (3)
  1. INVEGA [Suspect]
     Indication: SCHIZOPHRENIA
     Route: 048
     Dates: start: 20130601
  2. COGENTIN [Suspect]
     Indication: PROPHYLAXIS
     Route: 065
     Dates: start: 20130601
  3. TRAZODONE [Concomitant]
     Indication: SLEEP DISORDER
     Route: 048
     Dates: start: 201306

REACTIONS (2)
  - Laziness [Not Recovered/Not Resolved]
  - Feeling of relaxation [Not Recovered/Not Resolved]
